FAERS Safety Report 5151169-5 (Version None)
Quarter: 2006Q4

REPORT INFORMATION
  Report Type: 
  Country: None (occurrence: None)
  Receive Date: 20061114
  Receipt Date: 20061114
  Transmission Date: 20070319
  Serious: Yes (Hospitalization)
  Sender: FDA-Public Use
  Company Number: None

PATIENT
  Age: 51 Year
  Sex: Female
  Weight: 119.7496 kg

DRUGS (2)
  1. SODIUM STIBOGLUCONATE [Suspect]
     Indication: ANGIOSARCOMA
     Dosage: 400 MG/M2 PER PROTOCOL IV
     Route: 042
     Dates: start: 20061016, end: 20061027
  2. IFN ALPHA [Suspect]
     Indication: ANGIOSARCOMA
     Dosage: 5 MU/M2 DAILY PER PROTOCOL SQ
     Route: 058
     Dates: start: 20061016, end: 20061029

REACTIONS (3)
  - LOSS OF CONSCIOUSNESS [None]
  - NAUSEA [None]
  - SYNCOPE VASOVAGAL [None]
